FAERS Safety Report 23752719 (Version 2)
Quarter: 2024Q2

REPORT INFORMATION
  Report Type: Report from Study
  Country: CA (occurrence: CA)
  Receive Date: 20240417
  Receipt Date: 20240424
  Transmission Date: 20240715
  Serious: Yes (Death, Hospitalization, Other)
  Sender: FDA-Public Use
  Company Number: CA-IPSEN Group, Research and Development-2022-27467

PATIENT
  Age: 70 Year
  Sex: Male

DRUGS (9)
  1. LANREOTIDE ACETATE [Suspect]
     Active Substance: LANREOTIDE ACETATE
     Indication: Gastroenteropancreatic neuroendocrine tumour disease
     Route: 058
     Dates: start: 20220309, end: 2022
  2. XERMELO [Suspect]
     Active Substance: TELOTRISTAT ETHYL
     Indication: Carcinoid syndrome
     Dosage: TELOTRISTAT 250 MG TABLETS
     Route: 048
     Dates: start: 20210923, end: 2022
  3. TERAZOSIN HYDROCHLORIDE [Concomitant]
     Active Substance: TERAZOSIN HYDROCHLORIDE
  4. IMODIUM [Concomitant]
     Active Substance: LOPERAMIDE HYDROCHLORIDE
     Dosage: 2 MG 7 TAB/DAY
  5. COENZYME Q10 [Concomitant]
     Active Substance: DIETARY SUPPLEMENT\UBIDECARENONE
     Dosage: 9 MG TAB/DAY
  6. VITAMIN B12 [Concomitant]
     Active Substance: CYANOCOBALAMIN
  7. VITAMIN D3 [Concomitant]
     Active Substance: CHOLECALCIFEROL
     Dosage: 1000 UI
  8. MINERALS\VITAMINS [Concomitant]
     Active Substance: MINERALS\VITAMINS
  9. TAMSULOSIN [Concomitant]
     Active Substance: TAMSULOSIN

REACTIONS (8)
  - Death [Fatal]
  - Urinary tract infection [Unknown]
  - Gait disturbance [Unknown]
  - General physical health deterioration [Unknown]
  - Dyspnoea [Unknown]
  - Decreased appetite [Unknown]
  - Lipoatrophy [Unknown]
  - Urine abnormality [Unknown]

NARRATIVE: CASE EVENT DATE: 20220901
